FAERS Safety Report 9309940 (Version 3)
Quarter: 2013Q2

REPORT INFORMATION
  Report Type: Spontaneous
  Country: BR (occurrence: BR)
  Receive Date: 20130527
  Receipt Date: 20130620
  Transmission Date: 20140414
  Serious: Yes (Hospitalization, Other)
  Sender: FDA-Public Use
  Company Number: BR-AMGEN-BRASP2013036604

PATIENT
  Age: 57 Year
  Sex: Male
  Weight: 57 kg

DRUGS (8)
  1. ENBREL [Suspect]
     Indication: RHEUMATOID ARTHRITIS
     Dosage: 50 MG, WEEKLY
     Route: 058
     Dates: start: 201302, end: 20130405
  2. ENBREL [Suspect]
     Dosage: 50 MG, WEEKLY
     Route: 058
     Dates: start: 20130411, end: 201304
  3. CIPROFLOXACIN HCL [Suspect]
     Indication: NOSOCOMIAL INFECTION
     Dosage: 500 MG, UNK
  4. ARAVA [Concomitant]
     Dosage: 20 MG, UNK
  5. PREDNISONE [Concomitant]
     Dosage: 5 MG, UNK
  6. FOLIC ACID [Concomitant]
     Dosage: 2 MG, UNK
  7. ULTRACET [Concomitant]
     Indication: NERVOUS SYSTEM DISORDER
     Dosage: UNK
  8. GABAPENTIN [Concomitant]
     Indication: NERVOUS SYSTEM DISORDER
     Dosage: UNK

REACTIONS (7)
  - Intervertebral disc protrusion [Unknown]
  - Nosocomial infection [Unknown]
  - Underweight [Unknown]
  - Drug ineffective [Not Recovered/Not Resolved]
  - Feeling abnormal [Unknown]
  - Immunodeficiency [Not Recovered/Not Resolved]
  - Anaemia [Not Recovered/Not Resolved]
